FAERS Safety Report 11246088 (Version 1)
Quarter: 2015Q3

REPORT INFORMATION
  Report Type: Spontaneous
  Country: US (occurrence: US)
  Receive Date: 20150708
  Receipt Date: 20150708
  Transmission Date: 20151125
  Serious: No
  Sender: FDA-Public Use
  Company Number: US-009507513-1507USA003261

PATIENT
  Age: 65 Year
  Sex: Male

DRUGS (2)
  1. INTRON A [Suspect]
     Active Substance: INTERFERON ALFA-2B
     Indication: MALIGNANT MELANOMA
     Dosage: 2 ML EVERY MONDAY, WEDNESDAY, AND FRIDAY
     Dates: start: 20150301, end: 20150612
  2. INTRON A [Suspect]
     Active Substance: INTERFERON ALFA-2B
     Dosage: 2 ML EVERY MONDAY, WEDNESDAY, AND FRIDAY
     Dates: start: 20150701

REACTIONS (1)
  - Labyrinthitis [Recovered/Resolved]

NARRATIVE: CASE EVENT DATE: 20150609
